FAERS Safety Report 19110865 (Version 2)
Quarter: 2021Q3

REPORT INFORMATION
  Report Type: Spontaneous
  Country: BR (occurrence: BR)
  Receive Date: 20210409
  Receipt Date: 20210821
  Transmission Date: 20211014
  Serious: Yes (Other)
  Sender: FDA-Public Use
  Company Number: BR-ROCHE-2804185

PATIENT
  Age: 50 Year
  Sex: Male
  Weight: 100 kg

DRUGS (27)
  1. ANIDULAFUNGIN [Concomitant]
     Active Substance: ANIDULAFUNGIN
     Dates: start: 20210320, end: 20210402
  2. TEICOPLANIN [Concomitant]
     Active Substance: TEICOPLANIN
     Dates: start: 20210321, end: 20210328
  3. CLEXANE [Concomitant]
     Active Substance: ENOXAPARIN SODIUM
     Dates: start: 20210308, end: 20210328
  4. METHYLPREDNISOLONE. [Concomitant]
     Active Substance: METHYLPREDNISOLONE
     Dates: start: 20210426, end: 20210502
  5. MEROPENEM. [Concomitant]
     Active Substance: MEROPENEM
     Dates: start: 20210323, end: 20210401
  6. DEXAMETHASONE. [Concomitant]
     Active Substance: DEXAMETHASONE
     Dates: start: 20210312, end: 20210321
  7. METHYLPREDNISOLONE. [Concomitant]
     Active Substance: METHYLPREDNISOLONE
     Dates: start: 20210502, end: 20210507
  8. ESOMEPRAZOLE. [Concomitant]
     Active Substance: ESOMEPRAZOLE MAGNESIUM
     Dates: start: 20210510, end: 20210531
  9. MEROPENEM. [Concomitant]
     Active Substance: MEROPENEM
     Dates: start: 20210406, end: 20210415
  10. DEXAMETHASONE. [Concomitant]
     Active Substance: DEXAMETHASONE
     Dates: start: 20210308, end: 20210311
  11. METHYLPREDNISOLONE. [Concomitant]
     Active Substance: METHYLPREDNISOLONE
     Dates: start: 20210419, end: 20210426
  12. HYDROCORTISONE. [Concomitant]
     Active Substance: HYDROCORTISONE
     Dates: start: 20210329
  13. PREDNISONE. [Concomitant]
     Active Substance: PREDNISONE
     Dates: start: 20210510, end: 20210515
  14. AZITHROMYCIN ANHYDROUS. [Concomitant]
     Active Substance: AZITHROMYCIN ANHYDROUS
     Dates: start: 20210308, end: 20210309
  15. TAZOCIN [Concomitant]
     Active Substance: PIPERACILLIN SODIUM\TAZOBACTAM SODIUM
     Dates: start: 20210318, end: 20210322
  16. POLYMYXIN B. [Concomitant]
     Active Substance: POLYMYXIN B
     Dates: start: 20210329, end: 20210401
  17. CLEXANE [Concomitant]
     Active Substance: ENOXAPARIN SODIUM
     Dates: start: 20210420, end: 20210504
  18. METHYLPREDNISOLONE. [Concomitant]
     Active Substance: METHYLPREDNISOLONE
     Dates: start: 20210321
  19. AZTREONAM. [Concomitant]
     Active Substance: AZTREONAM
     Dates: start: 20210401, end: 20210405
  20. CLEXANE [Concomitant]
     Active Substance: ENOXAPARIN SODIUM
     Dates: start: 20210509, end: 20210531
  21. METHYLPREDNISOLONE. [Concomitant]
     Active Substance: METHYLPREDNISOLONE
     Dates: start: 20210403, end: 20210418
  22. PREDNISONE. [Concomitant]
     Active Substance: PREDNISONE
     Dates: start: 20210507, end: 20210510
  23. PANTOPRAZOLE [Concomitant]
     Active Substance: PANTOPRAZOLE
     Route: 042
  24. ACTEMRA [Suspect]
     Active Substance: TOCILIZUMAB
     Indication: COVID-19
     Route: 042
     Dates: start: 20210312, end: 20210313
  25. POLYMYXIN B. [Concomitant]
     Active Substance: POLYMYXIN B
     Dates: start: 20210406, end: 20210415
  26. CLEXANE [Concomitant]
     Active Substance: ENOXAPARIN SODIUM
     Dates: start: 20210404, end: 20210410
  27. CLEXANE [Concomitant]
     Active Substance: ENOXAPARIN SODIUM
     Dates: start: 20210504, end: 20210506

REACTIONS (5)
  - Hyperlactacidaemia [Unknown]
  - Hypotension [Unknown]
  - Off label use [Unknown]
  - Tachypnoea [Unknown]
  - Oxygen saturation decreased [Unknown]
